FAERS Safety Report 7064644-3 (Version None)
Quarter: 2010Q4

REPORT INFORMATION
  Report Type: 
  Country: None (occurrence: None)
  Receive Date: 20101027
  Receipt Date: 20101015
  Transmission Date: 20110411
  Serious: Yes (Other)
  Sender: FDA-Public Use
  Company Number: US-WYE-H18204810

PATIENT
  Sex: Female
  Weight: 64.47 kg

DRUGS (3)
  1. PREMARIN [Suspect]
     Indication: OESTROGEN REPLACEMENT THERAPY
     Dosage: UNKNOWN
     Dates: start: 19830101
  2. VALACICLOVIR [Concomitant]
     Indication: HERPES VIRUS INFECTION
     Dosage: 500 MG EVERY
  3. NEXIUM [Concomitant]
     Dosage: UNKNOWN

REACTIONS (12)
  - BREAST ENGORGEMENT [None]
  - DRUG INEFFECTIVE [None]
  - DRUG WITHDRAWAL SYNDROME [None]
  - EMOTIONAL DISORDER [None]
  - FEELING ABNORMAL [None]
  - HORMONE LEVEL ABNORMAL [None]
  - INJURY CORNEAL [None]
  - MALAISE [None]
  - MIGRAINE [None]
  - OCULAR HYPERAEMIA [None]
  - PRODUCT QUALITY ISSUE [None]
  - WRONG TECHNIQUE IN DRUG USAGE PROCESS [None]
